FAERS Safety Report 7749759-6 (Version None)
Quarter: 2011Q3

REPORT INFORMATION
  Report Type: 
  Country: None (occurrence: None)
  Receive Date: 20110914
  Receipt Date: 20110913
  Transmission Date: 20111222
  Serious: Yes (Hospitalization)
  Sender: FDA-Public Use
  Company Number: ZA-BRISTOL-MYERS SQUIBB COMPANY-16030140

PATIENT
  Age: 70 Year
  Sex: Female

DRUGS (2)
  1. TAXOL [Suspect]
  2. HERCEPTIN [Suspect]

REACTIONS (3)
  - PULSE ABSENT [None]
  - HYPERSENSITIVITY [None]
  - HYPOTENSION [None]
